FAERS Safety Report 4374003-X (Version None)
Quarter: 2004Q2

REPORT INFORMATION
  Report Type: 
  Country: None (occurrence: None)
  Receive Date: 20040601
  Receipt Date: 20040227
  Transmission Date: 20050107
  Serious: No
  Sender: FDA-Public Use
  Company Number: MPS1-10177

PATIENT
  Age: 31 Year
  Sex: Male
  Weight: 85.2762 kg

DRUGS (1)
  1. ALDURAZYME [Suspect]
     Indication: MUCOPOLYSACCHARIDOSIS I
     Dosage: 50 MG Q2WKS IV
     Route: 042
     Dates: start: 20031101

REACTIONS (1)
  - CATHETER RELATED COMPLICATION [None]
